FAERS Safety Report 20858412 (Version 1)
Quarter: 2022Q2

REPORT INFORMATION
  Report Type: Spontaneous
  Country: US (occurrence: US)
  Receive Date: 20220521
  Receipt Date: 20220521
  Transmission Date: 20220721
  Serious: No
  Sender: FDA-Public Use
  Company Number: US-AMGEN-USASP2022085447

PATIENT
  Age: 73 Year
  Sex: Female

DRUGS (1)
  1. EVENITY [Suspect]
     Active Substance: ROMOSOZUMAB-AQQG
     Indication: Osteoporosis postmenopausal
     Dosage: 2 DOSAGE FORM, QMO (2 EVENITY INJECTION IN EACH ARM EVERY MONTH)
     Route: 065

REACTIONS (2)
  - Nasopharyngitis [Unknown]
  - Injection site pain [Recovered/Resolved]

NARRATIVE: CASE EVENT DATE: 20220516
